FAERS Safety Report 16370399 (Version 1)
Quarter: 2019Q2

REPORT INFORMATION
  Report Type: Spontaneous
  Country: US (occurrence: US)
  Receive Date: 20190422
  Receipt Date: 20190422
  Transmission Date: 20190711
  Serious: Yes (Life-Threatening, Hospitalization)
  Sender: FDA-Public Use
  Company Number: None

PATIENT
  Age: 64 Year
  Sex: Male
  Weight: 137.89 kg

DRUGS (4)
  1. DECITABINE. [Suspect]
     Active Substance: DECITABINE
     Indication: ACUTE MYELOID LEUKAEMIA
     Route: 042
     Dates: start: 20181226, end: 20181230
  2. VENETOCLAX. [Suspect]
     Active Substance: VENETOCLAX
     Indication: ACUTE MYELOID LEUKAEMIA
     Route: 048
     Dates: start: 20190102, end: 20190111
  3. DECITABINE. [Suspect]
     Active Substance: DECITABINE
     Indication: DISEASE RECURRENCE
     Route: 042
     Dates: start: 20181226, end: 20181230
  4. VENETOCLAX. [Suspect]
     Active Substance: VENETOCLAX
     Indication: DISEASE RECURRENCE
     Route: 048
     Dates: start: 20190102, end: 20190111

REACTIONS (5)
  - Acute kidney injury [None]
  - Pancytopenia [None]
  - Pneumonitis [None]
  - Respiratory failure [None]
  - Tumour lysis syndrome [None]
